FAERS Safety Report 10482043 (Version 1)
Quarter: 2014Q3

REPORT INFORMATION
  Report Type: Report from Study
  Country: US (occurrence: US)
  Receive Date: 20140929
  Receipt Date: 20140929
  Transmission Date: 20150326
  Serious: Yes (Death)
  Sender: FDA-Public Use
  Company Number: US-SA-2014SA132910

PATIENT
  Age: 73 Year
  Sex: Female

DRUGS (1)
  1. RENVELA [Suspect]
     Active Substance: SEVELAMER CARBONATE
     Indication: RENAL FAILURE CHRONIC
     Dosage: RENVELA 800 MG TABLETS, 540 TABLETS FOR A 90 DAY SUPPLY. 2 TABLETS THREE TIMES A DAY PLUS MEALS.
     Route: 048
     Dates: start: 20140701

REACTIONS (2)
  - Chronic obstructive pulmonary disease [Fatal]
  - Pneumonia [Fatal]

NARRATIVE: CASE EVENT DATE: 2014
